FAERS Safety Report 10033347 (Version 1)
Quarter: 2014Q1

REPORT INFORMATION
  Report Type: Report from Study
  Country: US (occurrence: US)
  Receive Date: 20140325
  Receipt Date: 20140325
  Transmission Date: 20141002
  Serious: Yes (Hospitalization)
  Sender: FDA-Public Use
  Company Number: US-ROCHE-1366269

PATIENT
  Age: 74 Year
  Sex: Female

DRUGS (5)
  1. RITUXAN [Suspect]
     Indication: RHEUMATOID ARTHRITIS
     Route: 042
     Dates: start: 2010
  2. ZOLOFT [Concomitant]
     Route: 048
  3. PERCOCET [Concomitant]
     Indication: PAIN
     Route: 048
  4. NEXIUM [Concomitant]
     Route: 048
  5. PREDNISONE [Concomitant]
     Indication: RHEUMATOID ARTHRITIS
     Route: 048

REACTIONS (5)
  - Lung neoplasm malignant [Unknown]
  - Pneumonectomy [Unknown]
  - Fall [Unknown]
  - Sternal fracture [Not Recovered/Not Resolved]
  - Dyspnoea [Unknown]
